FAERS Safety Report 4834611-6 (Version None)
Quarter: 2005Q4

REPORT INFORMATION
  Report Type: 
  Country: None (occurrence: None)
  Receive Date: 20051122
  Receipt Date: 20050929
  Transmission Date: 20060501
  Serious: Yes (Other)
  Sender: FDA-Public Use
  Company Number: US-GLAXOSMITHKLINE-A0576381A

PATIENT
  Age: 77 Year
  Sex: Female

DRUGS (4)
  1. FLOVENT [Suspect]
     Indication: ASTHMA
     Dosage: 2PUFF TWICE PER DAY
     Route: 055
     Dates: start: 20050928, end: 20050928
  2. COMBIVENT [Concomitant]
     Route: 055
  3. THEOPHYLLINE [Concomitant]
     Route: 048
  4. THYROID TAB [Concomitant]
     Route: 048

REACTIONS (5)
  - CHEST DISCOMFORT [None]
  - DIFFICULTY IN WALKING [None]
  - DYSPHONIA [None]
  - DYSPNOEA [None]
  - PULMONARY CONGESTION [None]
